FAERS Safety Report 18849493 (Version 22)
Quarter: 2024Q2

REPORT INFORMATION
  Report Type: Report from Study
  Country: US (occurrence: US)
  Receive Date: 20210205
  Receipt Date: 20240502
  Transmission Date: 20240716
  Serious: Yes (Other)
  Sender: FDA-Public Use
  Company Number: US-ACADIA PHARMACEUTICALS INC.-ACA-2021-PIM-000132

PATIENT
  Age: 71 Year
  Sex: Male
  Weight: 109 kg

DRUGS (36)
  1. NUPLAZID [Suspect]
     Active Substance: PIMAVANSERIN TARTRATE
     Indication: Parkinson^s disease
     Dosage: 34 MILLIGRAM, QD
     Route: 048
     Dates: start: 20200227
  2. NUPLAZID [Suspect]
     Active Substance: PIMAVANSERIN TARTRATE
     Indication: Hallucination
     Dosage: 34 MILLIGRAM, QD
     Route: 048
     Dates: start: 20200926
  3. NUPLAZID [Suspect]
     Active Substance: PIMAVANSERIN TARTRATE
     Indication: Delusion
     Dosage: 34 MILLIGRAM, BID
     Route: 048
  4. NUPLAZID [Suspect]
     Active Substance: PIMAVANSERIN TARTRATE
     Dosage: 34 MILLIGRAM, QD
     Route: 048
  5. NUPLAZID [Suspect]
     Active Substance: PIMAVANSERIN TARTRATE
     Dosage: 34 MILLIGRAM, QD
     Route: 048
     Dates: end: 20240404
  6. MYRBETRIQ [Suspect]
     Active Substance: MIRABEGRON
     Route: 065
  7. DONEPEZIL HYDROCHLORIDE [Concomitant]
     Active Substance: DONEPEZIL HYDROCHLORIDE
     Dosage: 10 MILLIGRAM, TAKE ONE TABLET IN THE MORNING
     Route: 048
     Dates: start: 20230412
  8. NAMENDA XR [Concomitant]
     Active Substance: MEMANTINE HYDROCHLORIDE
     Indication: Memory impairment
     Dosage: 7 MILLIGRAM
  9. NAMENDA XR [Concomitant]
     Active Substance: MEMANTINE HYDROCHLORIDE
     Dosage: 10 MILLIGRAM, BID
  10. ROPINIROLE HYDROCHLORIDE [Concomitant]
     Active Substance: ROPINIROLE HYDROCHLORIDE
     Indication: Parkinson^s disease
     Dosage: 0.25 MG 2X DAILY
     Dates: start: 20230412
  11. ADVAIR HFA [Concomitant]
     Active Substance: FLUTICASONE PROPIONATE\SALMETEROL XINAFOATE
     Dosage: 100/50 DISKU
  12. MELATONIN [Concomitant]
     Active Substance: MELATONIN
     Dosage: 3 MILLIGRAM
  13. VALPROATE SODIUM [Concomitant]
     Active Substance: VALPROATE SODIUM
     Dosage: 5 MILLIGRAM, QD
  14. OMEPRAZOLE [Concomitant]
     Active Substance: OMEPRAZOLE
     Dosage: 40 MILLIGRAM
  15. MEMANTINE [Concomitant]
     Active Substance: MEMANTINE
     Dosage: 10 MILLIGRAM, BID
     Route: 048
     Dates: start: 20230412
  16. LEVOCETIRIZINE DIHYDROCHLORIDE [Concomitant]
     Active Substance: LEVOCETIRIZINE DIHYDROCHLORIDE
     Indication: Parkinsonism
     Dosage: 200 50 MG-200 MG-200 MG QID
     Route: 048
     Dates: start: 20230412
  17. TOVIAZ [Concomitant]
     Active Substance: FESOTERODINE FUMARATE
     Dosage: 8 MILLIGRAM
     Dates: start: 20200616
  18. LOSARTAN POTASSIUM [Concomitant]
     Active Substance: LOSARTAN POTASSIUM
     Dosage: 100 MILLIGRAM, QD
     Dates: start: 20200616
  19. TAMSULOSIN [Concomitant]
     Active Substance: TAMSULOSIN
     Dosage: 0.4 MG QD
     Dates: start: 20200616
  20. METOPROLOL SUCCINATE [Concomitant]
     Active Substance: METOPROLOL SUCCINATE
     Dosage: 100 MILLIGRAM ER
     Dates: start: 20200616
  21. REQUIP [Concomitant]
     Active Substance: ROPINIROLE HYDROCHLORIDE
     Dosage: 0.25 MG BID
  22. ARICEPT [Concomitant]
     Active Substance: DONEPEZIL HYDROCHLORIDE
     Indication: Memory impairment
     Dosage: 10 MILLIGRAM IN THE MORNING
  23. MOTRIN [Concomitant]
     Active Substance: IBUPROFEN
     Dosage: PRN
  24. GABAPENTIN [Concomitant]
     Active Substance: GABAPENTIN
     Dosage: 100 MILLIGRAM, TID
  25. SEROQUEL [Concomitant]
     Active Substance: QUETIAPINE FUMARATE
  26. ASPIRIN [Concomitant]
     Active Substance: ASPIRIN
     Indication: Ischaemia
  27. VALACYCLOVIR [Concomitant]
     Active Substance: VALACYCLOVIR HYDROCHLORIDE
  28. AMLODIPINE BESYLATE [Concomitant]
     Active Substance: AMLODIPINE BESYLATE
     Dosage: 2.5 MG ONCE A DAY
  29. METOPROLOL [Concomitant]
     Active Substance: METOPROLOL
     Dosage: 50 MILLIGRAM, QD
  30. TROSPIUM [Concomitant]
     Active Substance: TROSPIUM
     Dosage: 20 MILLIGRAM, QD
  31. GAS-X [Concomitant]
     Active Substance: DIMETHICONE
     Dosage: 125 MILLIGRAM
  32. SERTRALINE [Concomitant]
     Active Substance: SERTRALINE HYDROCHLORIDE
     Dosage: 25 MILLIGRAM
  33. TUMS [Concomitant]
     Active Substance: CALCIUM CARBONATE
     Dosage: 500 MILLIGRAM CHW
  34. TUMS [Concomitant]
     Active Substance: CALCIUM CARBONATE
     Dosage: PRN
  35. VITAMIN B1 [Concomitant]
     Active Substance: THIAMINE HYDROCHLORIDE
     Dosage: 100 MILLIGRAM
  36. CHOLECALCIFEROL [Concomitant]
     Active Substance: CHOLECALCIFEROL
     Dosage: 5000 UNIT

REACTIONS (46)
  - Atrial fibrillation [Unknown]
  - Bell^s palsy [Recovered/Resolved]
  - Condition aggravated [Unknown]
  - Product dose omission issue [Unknown]
  - Urinary tract infection [Unknown]
  - Condition aggravated [Unknown]
  - Condition aggravated [Unknown]
  - Hernia [Unknown]
  - Nonspecific reaction [Unknown]
  - Dementia [Not Recovered/Not Resolved]
  - Condition aggravated [Unknown]
  - Condition aggravated [Not Recovered/Not Resolved]
  - Hypersomnia [Not Recovered/Not Resolved]
  - Memory impairment [Unknown]
  - Hypersomnia [Not Recovered/Not Resolved]
  - Hypertension [Recovered/Resolved]
  - Asthenia [Not Recovered/Not Resolved]
  - Insomnia [Recovered/Resolved]
  - COVID-19 [Unknown]
  - Arthritis [Unknown]
  - Spondylitis [Unknown]
  - Nonspecific reaction [Unknown]
  - Condition aggravated [Not Recovered/Not Resolved]
  - Weight decreased [Not Recovered/Not Resolved]
  - Nonspecific reaction [Unknown]
  - Vomiting [Unknown]
  - Condition aggravated [Unknown]
  - Condition aggravated [Not Recovered/Not Resolved]
  - Condition aggravated [Unknown]
  - Laboratory test abnormal [Not Recovered/Not Resolved]
  - Infection [Recovered/Resolved]
  - Haemoptysis [Not Recovered/Not Resolved]
  - Nightmare [Not Recovered/Not Resolved]
  - Nausea [Not Recovered/Not Resolved]
  - Confusional state [Not Recovered/Not Resolved]
  - Constipation [Not Recovered/Not Resolved]
  - Hallucination [Not Recovered/Not Resolved]
  - Hallucination [Not Recovered/Not Resolved]
  - Hallucination [Recovered/Resolved]
  - Hallucination [Unknown]
  - Nausea [Unknown]
  - Gait disturbance [Unknown]
  - Oedema peripheral [Unknown]
  - Confusional state [Not Recovered/Not Resolved]
  - Fall [Not Recovered/Not Resolved]
  - Overdose [Unknown]

NARRATIVE: CASE EVENT DATE: 20200929
